FAERS Safety Report 9032442 (Version 1)
Quarter: 2013Q1

REPORT INFORMATION
  Report Type: Report from Study
  Country: GB (occurrence: GB)
  Receive Date: 20130125
  Receipt Date: 20130125
  Transmission Date: 20140127
  Serious: Yes (Other)
  Sender: FDA-Public Use
  Company Number: GB-VIIV HEALTHCARE LIMITED-A1008402A

PATIENT
  Age: 38 Year
  Sex: Female

DRUGS (4)
  1. COMBIVIR [Suspect]
     Indication: ANTIRETROVIRAL THERAPY
     Dosage: 2TAB PER DAY
     Route: 048
  2. RETROVIR [Suspect]
     Indication: ANTIRETROVIRAL THERAPY
     Dosage: 500MG PER DAY
     Route: 048
     Dates: start: 20120405, end: 20120607
  3. REYATAZ [Suspect]
     Indication: ANTIRETROVIRAL THERAPY
     Dosage: 300MG PER DAY
     Route: 048
  4. NORVIR [Suspect]
     Indication: ANTIRETROVIRAL THERAPY
     Dosage: 100MG PER DAY
     Route: 048
     Dates: start: 20120607

REACTIONS (4)
  - Caesarean section [Unknown]
  - Premature delivery [Unknown]
  - Live birth [Unknown]
  - Exposure during pregnancy [Unknown]
